FAERS Safety Report 8103883-7 (Version None)
Quarter: 2012Q1

REPORT INFORMATION
  Report Type: 
  Country: None (occurrence: None)
  Receive Date: 20120201
  Receipt Date: 20120127
  Transmission Date: 20120608
  Serious: Yes (Hospitalization)
  Sender: FDA-Public Use
  Company Number: FR-PFIZER INC-K201000128

PATIENT
  Age: 86 Year
  Sex: Male

DRUGS (9)
  1. SOTALOL HCL [Suspect]
     Dosage: 80 MG, 2X/DAY
     Route: 048
     Dates: start: 20090101, end: 20091204
  2. ALLOPURINOL [Suspect]
     Dosage: 100 MG, 1X/DAY
     Route: 048
     Dates: start: 20090609, end: 20091203
  3. ASPIRIN [Suspect]
     Dosage: 75 MG, 1X/DAY
     Route: 048
     Dates: start: 20090101
  4. ACETAMINOPHEN [Suspect]
     Dosage: 1 G, 3X/DAY
     Dates: start: 20090609
  5. LASIX [Suspect]
     Indication: HYPERTENSION
     Dosage: 500 MG, 1X/DAY
     Route: 048
     Dates: start: 20090101
  6. OMEPRAZOLE [Suspect]
     Dosage: 20 MG, 1X/DAY
     Route: 048
     Dates: start: 20090101, end: 20091202
  7. ATARAX [Suspect]
     Dosage: 25 MG, 2X/DAY
     Dates: start: 20090707
  8. SIMVASTATIN [Suspect]
     Dosage: 20 MG, 1X/DAY
     Dates: start: 20090101, end: 20091202
  9. ALTACE [Suspect]
     Dosage: 10 MG, 1X/DAY
     Route: 048
     Dates: start: 20090909

REACTIONS (8)
  - INSOMNIA [None]
  - LICHENOID KERATOSIS [None]
  - XEROSIS [None]
  - PRURITUS [None]
  - HYPERKERATOSIS [None]
  - SKIN LESION [None]
  - RASH MACULO-PAPULAR [None]
  - LYMPHADENOPATHY [None]
